FAERS Safety Report 23911474 (Version 3)
Quarter: 2024Q3

REPORT INFORMATION
  Report Type: Spontaneous
  Country: US (occurrence: US)
  Receive Date: 20240528
  Receipt Date: 20240909
  Transmission Date: 20241017
  Serious: Yes (Hospitalization, Other)
  Sender: SANOFI AVENTIS
  Company Number: US-SA-SAC20240520001120

PATIENT
  Age: 60 Year
  Sex: Female

DRUGS (1)
  1. DUPIXENT [Suspect]
     Active Substance: DUPILUMAB
     Indication: Asthma
     Dosage: 300 MG, QOW
     Route: 058

REACTIONS (7)
  - Pneumonia [Not Recovered/Not Resolved]
  - Impaired quality of life [Unknown]
  - Heart rate decreased [Unknown]
  - Blood glucose decreased [Unknown]
  - Ocular discomfort [Recovering/Resolving]
  - Dyspnoea [Unknown]
  - Therapeutic response decreased [Unknown]
